FAERS Safety Report 15720229 (Version 3)
Quarter: 2019Q3

REPORT INFORMATION
  Report Type: Report from Study
  Country: BR (occurrence: BR)
  Receive Date: 20181213
  Receipt Date: 20190929
  Transmission Date: 20191004
  Serious: Yes (Death, Hospitalization, Other)
  Sender: FDA-Public Use
  Company Number: PHHY2018BR183444

PATIENT
  Age: 91 Year
  Sex: Female
  Weight: 39 kg

DRUGS (4)
  1. EXELON PATCH [Suspect]
     Active Substance: RIVASTIGMINE
     Indication: MEMORY IMPAIRMENT
     Dosage: 4.6 MG, QD PATCH 5 (CM2)
     Route: 062
  2. EXELON PATCH [Suspect]
     Active Substance: RIVASTIGMINE
     Indication: DEMENTIA ALZHEIMER^S TYPE
  3. EXELON PATCH [Suspect]
     Active Substance: RIVASTIGMINE
     Indication: PERSONALITY CHANGE
  4. EXELON PATCH [Suspect]
     Active Substance: RIVASTIGMINE
     Indication: DEMENTIA
     Dosage: 9.5 MG, QD PATCH 10 (CM2)
     Route: 062

REACTIONS (22)
  - Shock [Fatal]
  - Asthenia [Fatal]
  - Malaise [Not Recovered/Not Resolved]
  - Pyrexia [Recovered/Resolved]
  - Nephrolithiasis [Recovering/Resolving]
  - Eye disorder [Recovering/Resolving]
  - Pulmonary sepsis [Fatal]
  - Pneumonia [Not Recovered/Not Resolved]
  - Sepsis [Fatal]
  - Nosocomial infection [Recovering/Resolving]
  - Bacterial infection [Recovering/Resolving]
  - Speech disorder [Recovering/Resolving]
  - Pneumonia bacterial [Fatal]
  - Pain [Recovering/Resolving]
  - Decubitus ulcer [Fatal]
  - Infection [Recovering/Resolving]
  - Oxygen saturation decreased [Recovering/Resolving]
  - Cardiac arrest [Fatal]
  - Spinal disorder [Recovering/Resolving]
  - Viral infection [Recovering/Resolving]
  - Spinal column injury [Not Recovered/Not Resolved]
  - Eschar [Not Recovered/Not Resolved]

NARRATIVE: CASE EVENT DATE: 201812
